FAERS Safety Report 8641395 (Version 2)
Quarter: 2013Q1

REPORT INFORMATION
  Report Type: Report from Study
  Country: FR (occurrence: FR)
  Receive Date: 20120628
  Receipt Date: 20130128
  Transmission Date: 20140127
  Serious: Yes (Death)
  Sender: FDA-Public Use
  Company Number: FR-ROCHE-CID000000002058335

PATIENT
  Age: 67 Year
  Sex: Female
  Weight: 80 kg

DRUGS (5)
  1. BEVACIZUMAB [Suspect]
     Indication: COLORECTAL CANCER METASTATIC
     Route: 042
     Dates: start: 20110117, end: 20111206
  2. BEVACIZUMAB [Suspect]
     Indication: COLON CANCER METASTATIC
  3. FOLINIC ACID [Suspect]
     Indication: COLON CANCER METASTATIC
     Route: 042
     Dates: start: 20111017, end: 20111207
  4. 5-FU [Suspect]
     Indication: COLON CANCER METASTATIC
     Route: 042
     Dates: start: 20111017, end: 20111207
  5. IRINOTECAN [Suspect]
     Indication: COLON CANCER METASTATIC
     Route: 042
     Dates: start: 20111017, end: 20111207

REACTIONS (1)
  - Cardiac arrest [Fatal]
